FAERS Safety Report 6564807-7 (Version None)
Quarter: 2010Q1

REPORT INFORMATION
  Report Type: 
  Country: None (occurrence: None)
  Receive Date: 20100201
  Receipt Date: 20100120
  Transmission Date: 20100710
  Serious: Yes (Hospitalization)
  Sender: FDA-Public Use
  Company Number: FR-PFIZER INC-2010009668

PATIENT
  Age: 68 Year
  Sex: Male

DRUGS (9)
  1. ATARAX [Suspect]
     Indication: ANAESTHETIC PREMEDICATION
     Dosage: UNK, SINGLE DOSE
     Route: 048
     Dates: start: 20091211, end: 20091211
  2. ATARAX [Suspect]
     Dosage: UNK, SINGLE DOSE
     Route: 048
     Dates: start: 20091214, end: 20091214
  3. EPHEDRINE [Suspect]
     Dosage: 100 MG, SINGLE
     Route: 042
     Dates: start: 20091211
  4. EPHEDRINE [Suspect]
     Dosage: 100 MG, ONE SINGLE INTAKE
     Route: 042
     Dates: start: 20091214
  5. ACUPAN [Suspect]
     Dosage: UNK
     Route: 042
     Dates: start: 20091211, end: 20091214
  6. DIPRIVAN [Concomitant]
     Dosage: UNK
     Dates: start: 20091211
  7. SUFENTA [Concomitant]
     Dosage: UNK
     Dates: start: 20091211
  8. ATRACURIUM [Concomitant]
     Dosage: UNK
     Dates: start: 20091211
  9. MORPHINE [Concomitant]
     Dosage: UNK
     Dates: start: 20091211

REACTIONS (1)
  - ANGLE CLOSURE GLAUCOMA [None]
